FAERS Safety Report 23058626 (Version 1)
Quarter: 2023Q4

REPORT INFORMATION
  Report Type: Spontaneous
  Country: US (occurrence: None)
  Receive Date: 20231012
  Receipt Date: 20231012
  Transmission Date: 20240109
  Serious: No
  Sender: FDA-Public Use
  Company Number: 2023A230920

PATIENT

DRUGS (1)
  1. SEROQUEL [Suspect]
     Active Substance: QUETIAPINE FUMARATE
     Route: 048

REACTIONS (5)
  - Hunger [Unknown]
  - Hyperphagia [Unknown]
  - Irritability [Unknown]
  - Visual impairment [Unknown]
  - Product substitution issue [Unknown]
